FAERS Safety Report 20894507 (Version 1)
Quarter: 2022Q2

REPORT INFORMATION
  Report Type: Spontaneous
  Country: US (occurrence: None)
  Receive Date: 20220527
  Receipt Date: 20220527
  Transmission Date: 20220721
  Serious: Yes (Life-Threatening)
  Sender: FDA-Public Use
  Company Number: None

PATIENT
  Age: 74 Year
  Sex: Female
  Weight: 58.5 kg

DRUGS (9)
  1. HIBICLENS [Suspect]
     Active Substance: CHLORHEXIDINE GLUCONATE
     Indication: Infection prophylaxis
     Route: 061
     Dates: start: 20220517, end: 20220517
  2. LORAZEPAM [Concomitant]
     Active Substance: LORAZEPAM
  3. Calcium WITH D3 1000 IU [Concomitant]
  4. VITAMIN D3 [Concomitant]
     Active Substance: CHOLECALCIFEROL
  5. FISH OIL [Concomitant]
     Active Substance: FISH OIL
  6. OMEGA-3 ACIDS [Concomitant]
     Active Substance: OMEGA-3 FATTY ACIDS
  7. Multiple vitamin [Concomitant]
  8. Probiotic (Culturelle) [Concomitant]
  9. COENZYME Q10 [Concomitant]
     Active Substance: DIETARY SUPPLEMENT\UBIDECARENONE

REACTIONS (7)
  - Pain [None]
  - Incision site pain [None]
  - Skin exfoliation [None]
  - Incision site swelling [None]
  - Incision site erythema [None]
  - Neuritis [None]
  - Drug hypersensitivity [None]

NARRATIVE: CASE EVENT DATE: 20220517
